FAERS Safety Report 17905961 (Version 1)
Quarter: 2020Q2

REPORT INFORMATION
  Report Type: Spontaneous
  Country: US (occurrence: US)
  Receive Date: 20200616
  Receipt Date: 20200616
  Transmission Date: 20200714
  Serious: No
  Sender: FDA-Public Use
  Company Number: US-ROCHE-2304258

PATIENT
  Age: 69 Year
  Sex: Female

DRUGS (1)
  1. ACTEMRA [Suspect]
     Active Substance: TOCILIZUMAB
     Indication: PRODUCT USED FOR UNKNOWN INDICATION
     Dosage: 162MG/0.9ML INJ
     Route: 058
     Dates: start: 201903

REACTIONS (7)
  - Memory impairment [Unknown]
  - Dizziness [Unknown]
  - Feeling abnormal [Unknown]
  - Insomnia [Unknown]
  - Fatigue [Unknown]
  - Asthenia [Unknown]
  - Headache [Unknown]

NARRATIVE: CASE EVENT DATE: 20191022
